FAERS Safety Report 6211840-0 (Version None)
Quarter: 2009Q2

REPORT INFORMATION
  Report Type: 
  Country: None (occurrence: None)
  Receive Date: 20090602
  Receipt Date: 20090521
  Transmission Date: 20091009
  Serious: Yes (Other)
  Sender: FDA-Public Use
  Company Number: GB-PFIZER INC-2009194119

PATIENT
  Age: 60 Year

DRUGS (1)
  1. LYRICA [Suspect]
     Indication: PAIN
     Dosage: 50 MG, 6X DAILY
     Dates: start: 20090317, end: 20090401

REACTIONS (2)
  - DIVERTICULITIS [None]
  - DIVERTICULUM INTESTINAL HAEMORRHAGIC [None]
